FAERS Safety Report 14293736 (Version 3)
Quarter: 2024Q3

REPORT INFORMATION
  Report Type: Spontaneous
  Country: US (occurrence: US)
  Receive Date: 20171216
  Receipt Date: 20240923
  Transmission Date: 20241016
  Serious: Yes (Hospitalization, Other)
  Sender: ACCORD
  Company Number: US-MLMSERVICE-20171129-0982373-1

PATIENT
  Age: 44 Year
  Sex: Male

DRUGS (2)
  1. MYCOPHENOLATE MOFETIL [Suspect]
     Active Substance: MYCOPHENOLATE MOFETIL
     Indication: Dermatitis contact
  2. PREDNISONE [Suspect]
     Active Substance: PREDNISONE
     Indication: Dermatitis contact
     Dosage: 40 AND 60 MG
     Route: 048

REACTIONS (7)
  - Cellulitis [Recovering/Resolving]
  - Secondary immunodeficiency [Recovering/Resolving]
  - Lymphopenia [Recovering/Resolving]
  - Infection [Recovered/Resolved]
  - Pneumonia [Unknown]
  - Off label use [Unknown]
  - Molluscum contagiosum [Unknown]
